FAERS Safety Report 4282864-8 (Version None)
Quarter: 2004Q1

REPORT INFORMATION
  Report Type: 
  Country: None (occurrence: None)
  Receive Date: 20040130
  Receipt Date: 20030722
  Transmission Date: 20041129
  Serious: No
  Sender: FDA-Public Use
  Company Number: US-BRISTOL-MYERS SQUIBB COMPANY-12333696

PATIENT
  Sex: Female

DRUGS (3)
  1. SERZONE [Suspect]
     Route: 048
     Dates: end: 20030628
  2. EFFEXOR [Suspect]
     Dosage: PRESCRIBED FOR ^ONE WEEK^
  3. WELLBUTRIN [Suspect]
     Dosage: PRESCRIBED FOR THE ^SECOND WEEK^

REACTIONS (1)
  - LIVER FUNCTION TEST ABNORMAL [None]
